FAERS Safety Report 4947687-2 (Version None)
Quarter: 2006Q1

REPORT INFORMATION
  Report Type: 
  Country: None (occurrence: None)
  Receive Date: 20060317
  Receipt Date: 20060317
  Transmission Date: 20060701
  Serious: No
  Sender: FDA-Public Use
  Company Number: None

PATIENT
  Age: 65 Year
  Sex: Female
  Weight: 58.9676 kg

DRUGS (1)
  1. GENTEAL LUBRICANT EYE DROPS (25 ML)   HYPROMELLASE 0.3% [Suspect]
     Indication: DRY EYE
     Dosage: 3 OR 4 DROPS IN EYES PER DAY FOR 4 DAYS
     Route: 047
     Dates: start: 20060213, end: 20060216

REACTIONS (5)
  - CORNEAL DISORDER [None]
  - EYE DISORDER [None]
  - EYE PAIN [None]
  - INSTILLATION SITE REACTION [None]
  - ULCER [None]
